FAERS Safety Report 23848732 (Version 2)
Quarter: 2024Q2

REPORT INFORMATION
  Report Type: Report from Study
  Country: US (occurrence: US)
  Receive Date: 20240513
  Receipt Date: 20240517
  Transmission Date: 20240716
  Serious: No
  Sender: FDA-Public Use
  Company Number: US-PFIZER INC-202400105861

PATIENT
  Age: 87 Year
  Sex: Male

DRUGS (8)
  1. VYNDAMAX [Suspect]
     Active Substance: TAFAMIDIS
     Indication: Amyloidosis
     Dosage: 61 MG, 1X/DAY
  2. JARDIANCE [Concomitant]
     Active Substance: EMPAGLIFLOZIN
  3. ELIQUIS [Concomitant]
     Active Substance: APIXABAN
  4. MINERALS\VITAMINS [Concomitant]
     Active Substance: MINERALS\VITAMINS
  5. LASIX [Concomitant]
     Active Substance: FUROSEMIDE
  6. VITAMIN D4 [Concomitant]
  7. SPIRONOLACTONE [Concomitant]
     Active Substance: SPIRONOLACTONE
  8. VITAMIN B12 [Concomitant]
     Active Substance: CYANOCOBALAMIN

REACTIONS (1)
  - Balance disorder [Not Recovered/Not Resolved]
